FAERS Safety Report 9716571 (Version 1)
Quarter: 2013Q4

REPORT INFORMATION
  Report Type: Spontaneous
  Country: US (occurrence: US)
  Receive Date: 20131127
  Receipt Date: 20131127
  Transmission Date: 20140711
  Serious: No
  Sender: FDA-Public Use
  Company Number: US-PFIZER INC-2013334024

PATIENT
  Age: 74 Year
  Sex: Female

DRUGS (1)
  1. PANTOPRAZOLE [Suspect]
     Dosage: UNK

REACTIONS (4)
  - Gastric disorder [Unknown]
  - Flatulence [Unknown]
  - Blister [Unknown]
  - Muscle spasms [Unknown]
